FAERS Safety Report 9904727 (Version 2)
Quarter: 2014Q1

REPORT INFORMATION
  Report Type: Spontaneous
  Country: US (occurrence: US)
  Receive Date: 20140218
  Receipt Date: 20140225
  Transmission Date: 20141002
  Serious: Yes (Death)
  Sender: FDA-Public Use
  Company Number: US-B.I. PHARMACEUTICALS,INC./RIDGEFIELD-2014-BI-06818BP

PATIENT
  Age: 85 Year
  Sex: Female

DRUGS (3)
  1. SPIRIVA [Suspect]
     Indication: DYSPNOEA
     Dosage: 18 MCG
     Route: 055
     Dates: start: 201102, end: 20110705
  2. SPIRIVA [Suspect]
     Indication: LUNG NEOPLASM MALIGNANT
  3. ALBUTEROL [Concomitant]
     Indication: LUNG NEOPLASM MALIGNANT
     Dosage: FORMULATION:INHALATION SOLUTION
     Route: 055

REACTIONS (2)
  - Lung neoplasm malignant [Fatal]
  - Off label use [Recovered/Resolved]
